FAERS Safety Report 5498790-2 (Version None)
Quarter: 2007Q4

REPORT INFORMATION
  Report Type: 
  Country: None (occurrence: None)
  Receive Date: 20071026
  Receipt Date: 20070718
  Transmission Date: 20080405
  Serious: No
  Sender: FDA-Public Use
  Company Number: A0664863A

PATIENT
  Age: 78 Year
  Sex: Male

DRUGS (2)
  1. ADVAIR DISKUS 100/50 [Suspect]
     Dosage: 1PUFF TWICE PER DAY
     Route: 055
     Dates: start: 20070714
  2. ALPHA-LIPOIC ACID [Concomitant]

REACTIONS (2)
  - AMNESIA [None]
  - BLOOD GLUCOSE INCREASED [None]
